FAERS Safety Report 7515922-2 (Version None)
Quarter: 2011Q2

REPORT INFORMATION
  Report Type: 
  Country: None (occurrence: None)
  Receive Date: 20110601
  Receipt Date: 20110525
  Transmission Date: 20111010
  Serious: Yes (Other)
  Sender: FDA-Public Use
  Company Number: GB-SANOFI-AVENTIS-2011SA033335

PATIENT
  Age: 75 Year
  Sex: Female

DRUGS (13)
  1. ALLOPURINOL [Concomitant]
  2. BISOPROLOL FUMARATE [Concomitant]
  3. ACETAMINOPHEN [Concomitant]
  4. LEVOTHYROXINE SODIUM [Concomitant]
  5. OMEPRAZOLE [Concomitant]
  6. ALBUTEROL [Concomitant]
  7. WARFARIN SODIUM [Concomitant]
  8. MULTAQ [Suspect]
     Route: 048
     Dates: start: 20110420, end: 20110422
  9. ALENDRONATE SODIUM [Concomitant]
  10. DIGOXIN [Concomitant]
  11. FUROSEMIDE [Concomitant]
  12. SERETIDE [Concomitant]
  13. SPIRONOLACTONE [Concomitant]

REACTIONS (2)
  - RENAL IMPAIRMENT [None]
  - BLOOD CREATININE INCREASED [None]
